FAERS Safety Report 21891728 (Version 1)
Quarter: 2023Q1

REPORT INFORMATION
  Report Type: Spontaneous
  Country: AR (occurrence: AR)
  Receive Date: 20230120
  Receipt Date: 20230120
  Transmission Date: 20230417
  Serious: Yes (Other)
  Sender: FDA-Public Use
  Company Number: AR-BAYER-2023A004399

PATIENT
  Age: 33 Year
  Sex: Female

DRUGS (1)
  1. CIPROFLOXACIN [Suspect]
     Active Substance: CIPROFLOXACIN
     Indication: Urinary tract infection

REACTIONS (4)
  - Placental disorder [None]
  - Maternal exposure during pregnancy [None]
  - Product use issue [None]
  - Premature delivery [None]
